FAERS Safety Report 7188099-3 (Version None)
Quarter: 2010Q4

REPORT INFORMATION
  Report Type: 
  Country: None (occurrence: None)
  Receive Date: 20101222
  Receipt Date: 20100713
  Transmission Date: 20110411
  Serious: No
  Sender: FDA-Public Use
  Company Number: US-AMGEN-TCS424155

PATIENT

DRUGS (3)
  1. ENBREL [Suspect]
     Indication: RHEUMATOID ARTHRITIS
     Dosage: 50 MG, QWK
     Route: 058
     Dates: start: 20030101
  2. ENBREL [Suspect]
     Indication: PSORIASIS
  3. UNSPECIFIED MEDICATION [Concomitant]

REACTIONS (6)
  - ARTHRALGIA [None]
  - BACK PAIN [None]
  - NECK PAIN [None]
  - PAIN [None]
  - PSORIASIS [None]
  - SKIN CHAPPED [None]
